FAERS Safety Report 8901967 (Version 1)
Quarter: 2012Q4

REPORT INFORMATION
  Report Type: Report from Study
  Country: GB (occurrence: GB)
  Receive Date: 20121109
  Receipt Date: 20121109
  Transmission Date: 20130627
  Serious: Yes (Hospitalization)
  Sender: FDA-Public Use
  Company Number: GB-AMGEN-GBRCT2012070225

PATIENT
  Age: 63 Year
  Sex: Female
  Weight: 93 kg

DRUGS (1)
  1. ETANERCEPT [Suspect]
     Indication: SERONEGATIVE ARTHRITIS
     Dosage: 25 mg, 2 times/wk
     Dates: start: 20050515, end: 20110518

REACTIONS (1)
  - Neuroendocrine tumour [Unknown]
